FAERS Safety Report 8366904-2 (Version None)
Quarter: 2012Q2

REPORT INFORMATION
  Report Type: 
  Country: None (occurrence: None)
  Receive Date: 20120517
  Receipt Date: 20120509
  Transmission Date: 20120825
  Serious: Yes (Other)
  Sender: FDA-Public Use
  Company Number: GR-JNJFOC-20120509222

PATIENT
  Age: 28 Year
  Sex: Female

DRUGS (2)
  1. SIMPONI [Suspect]
     Indication: ANKYLOSING SPONDYLITIS
     Route: 058
     Dates: start: 20120501
  2. CORTICOSTEROIDS [Concomitant]
     Indication: SACROILIITIS

REACTIONS (2)
  - PALPABLE PURPURA [None]
  - IGA NEPHROPATHY [None]
